FAERS Safety Report 9437256 (Version 1)
Quarter: 2013Q3

REPORT INFORMATION
  Report Type: Spontaneous
  Country: US (occurrence: None)
  Receive Date: 20130731
  Receipt Date: 20130731
  Transmission Date: 20140515
  Serious: Yes (Death)
  Sender: FDA-Public Use
  Company Number: CPS-2013-0017

PATIENT
  Age: 59 Year
  Sex: Male

DRUGS (3)
  1. METHAMPHETAMINE HYDROCHLORIDE [Suspect]
  2. BYDUREON [Suspect]
     Dates: start: 20100928
  3. PLACEBO [Suspect]
     Dates: start: 20100928

REACTIONS (2)
  - Toxicity to various agents [None]
  - Accidental death [None]
